FAERS Safety Report 6898985-7 (Version None)
Quarter: 2010Q3

REPORT INFORMATION
  Report Type: 
  Country: None (occurrence: None)
  Receive Date: 20100802
  Receipt Date: 20071211
  Transmission Date: 20110219
  Serious: No
  Sender: FDA-Public Use
  Company Number: US-PFIZER INC-2007103016

PATIENT
  Sex: Female
  Weight: 106.6 kg

DRUGS (7)
  1. LYRICA [Suspect]
     Indication: PAIN
     Route: 048
     Dates: start: 20071029, end: 20071101
  2. LISINOPRIL [Concomitant]
     Indication: BLOOD PRESSURE ABNORMAL
     Route: 048
  3. LIPITOR [Concomitant]
     Indication: BLOOD CHOLESTEROL ABNORMAL
     Route: 048
  4. PLAVIX [Concomitant]
     Route: 048
  5. METFORMIN HCL [Concomitant]
     Route: 048
  6. COREG [Concomitant]
     Route: 048
  7. ACTOS [Concomitant]
     Route: 048

REACTIONS (1)
  - PAIN [None]
